FAERS Safety Report 7612039-3 (Version None)
Quarter: 2011Q3

REPORT INFORMATION
  Report Type: 
  Country: None (occurrence: None)
  Receive Date: 20110715
  Receipt Date: 20110705
  Transmission Date: 20111222
  Serious: Yes (Hospitalization)
  Sender: FDA-Public Use
  Company Number: US-ABBOTT-11P-163-0836892-00

PATIENT
  Sex: Female

DRUGS (5)
  1. CALCITRIOL [Concomitant]
     Indication: MINERAL SUPPLEMENTATION
  2. CALCIUM CARBONATE [Concomitant]
     Indication: MINERAL SUPPLEMENTATION
  3. FLORASTOR [Concomitant]
     Indication: BONE DISORDER
  4. LYRICA [Concomitant]
     Indication: PAIN
  5. HUMIRA [Suspect]
     Indication: CROHN'S DISEASE
     Dates: start: 20101101

REACTIONS (16)
  - OSTEOPOROSIS [None]
  - VITAMIN D DECREASED [None]
  - DEHYDRATION [None]
  - PELVIC FRACTURE [None]
  - HYPERHIDROSIS [None]
  - INTESTINAL OBSTRUCTION [None]
  - PYREXIA [None]
  - CHILLS [None]
  - UPPER RESPIRATORY TRACT INFECTION [None]
  - MALAISE [None]
  - FATIGUE [None]
  - SPINAL FRACTURE [None]
  - PATHOLOGICAL FRACTURE [None]
  - ASCITES [None]
  - WOUND INFECTION [None]
  - WOUND SECRETION [None]
